FAERS Safety Report 18970175 (Version 1)
Quarter: 2021Q1

REPORT INFORMATION
  Report Type: Spontaneous
  Country: CL (occurrence: CL)
  Receive Date: 20210304
  Receipt Date: 20210304
  Transmission Date: 20210420
  Serious: Yes (Other)
  Sender: FDA-Public Use
  Company Number: CL-PFIZER INC-2021204235

PATIENT

DRUGS (1)
  1. CAVERJECT [Suspect]
     Active Substance: ALPROSTADIL

REACTIONS (1)
  - Diabetes mellitus [Unknown]
